FAERS Safety Report 9905516 (Version 6)
Quarter: 2015Q4

REPORT INFORMATION
  Report Type: Spontaneous
  Country: US (occurrence: US)
  Receive Date: 20140218
  Receipt Date: 20151020
  Transmission Date: 20160305
  Serious: Yes (Hospitalization, Other)
  Sender: FDA-Public Use
  Company Number: US-GLAXOSMITHKLINE-A1061239A

PATIENT
  Age: 55 Year

DRUGS (3)
  1. ADVAIR HFA [Suspect]
     Active Substance: FLUTICASONE PROPIONATE\SALMETEROL XINAFOATE
     Indication: EMPHYSEMA
     Dates: start: 2012
  2. VENTOLIN HFA [Suspect]
     Active Substance: ALBUTEROL SULFATE
     Indication: EMPHYSEMA
     Dosage: 2 PUFF(S), 6D
     Route: 055
     Dates: start: 2005
  3. VENTOLIN HFA [Suspect]
     Active Substance: ALBUTEROL SULFATE
     Dosage: 1 PUFF(S), 6D

REACTIONS (23)
  - Cough [Unknown]
  - Productive cough [Unknown]
  - Pruritus [Not Recovered/Not Resolved]
  - Total lung capacity decreased [Recovering/Resolving]
  - Oxygen saturation decreased [Recovering/Resolving]
  - Traumatic lung injury [Unknown]
  - General physical health deterioration [Recovering/Resolving]
  - Hypersensitivity [Recovering/Resolving]
  - Intentional product use issue [Unknown]
  - Oxygen supplementation [Recovered/Resolved]
  - Lung disorder [Unknown]
  - Urticaria [Unknown]
  - Wheezing [Unknown]
  - Eczema [Recovering/Resolving]
  - Dyspnoea [Recovering/Resolving]
  - Alopecia [Recovering/Resolving]
  - Underdose [Unknown]
  - Skin ulcer [Unknown]
  - Peripheral swelling [Recovering/Resolving]
  - Partial lung resection [Unknown]
  - Skin disorder [Recovering/Resolving]
  - Scratch [Unknown]
  - Laceration [Unknown]

NARRATIVE: CASE EVENT DATE: 201503
